FAERS Safety Report 9929259 (Version 4)
Quarter: 2014Q2

REPORT INFORMATION
  Report Type: Spontaneous
  Country: US (occurrence: US)
  Receive Date: 20140227
  Receipt Date: 20140415
  Transmission Date: 20141212
  Serious: Yes (Other)
  Sender: FDA-Public Use
  Company Number: US-SANOFI-AVENTIS-2013SA051373

PATIENT
  Age: 73 Year
  Sex: Female
  Weight: 87 kg

DRUGS (15)
  1. LANTUS SOLOSTAR [Suspect]
     Indication: TYPE 2 DIABETES MELLITUS
     Dosage: DOSE:24 UNIT(S)
     Route: 051
  2. LANTUS SOLOSTAR [Suspect]
     Indication: TYPE 2 DIABETES MELLITUS
     Dosage: DOSE:24 UNIT(S)
     Route: 051
  3. LANTUS SOLOSTAR [Suspect]
     Indication: TYPE 2 DIABETES MELLITUS
     Dosage: DOSE:30 UNIT(S)
     Route: 051
     Dates: start: 20140116
  4. LANTUS SOLOSTAR [Suspect]
     Indication: TYPE 2 DIABETES MELLITUS
     Dosage: DOSE:32 UNIT(S)
     Route: 051
     Dates: start: 201402
  5. LANTUS SOLOSTAR [Suspect]
     Indication: TYPE 2 DIABETES MELLITUS
     Dosage: DOSE:28 UNIT(S)
     Route: 051
  6. HUMALOG [Suspect]
     Route: 065
  7. SOLOSTAR [Concomitant]
     Indication: TYPE 2 DIABETES MELLITUS
  8. SOLOSTAR [Concomitant]
     Indication: TYPE 2 DIABETES MELLITUS
  9. SOLOSTAR [Concomitant]
     Indication: TYPE 2 DIABETES MELLITUS
  10. NORVASC [Concomitant]
     Indication: HYPERTENSION
     Route: 065
     Dates: start: 20130312
  11. CRESTOR [Concomitant]
     Indication: BLOOD CHOLESTEROL INCREASED
     Route: 065
     Dates: start: 20100112
  12. ASA [Concomitant]
     Indication: PROPHYLAXIS
     Route: 065
     Dates: start: 20110312
  13. LISINOPRIL [Concomitant]
     Indication: HYPERTENSION
     Route: 065
     Dates: start: 20130614
  14. PRILOSEC [Concomitant]
     Indication: GASTROOESOPHAGEAL REFLUX DISEASE
     Route: 065
     Dates: start: 20120114
  15. LEVOTHYROXINE [Concomitant]
     Indication: HYPOTHYROIDISM
     Dates: start: 20140228

REACTIONS (9)
  - Throat cancer [Unknown]
  - Oropharyngeal pain [Unknown]
  - Weight decreased [Unknown]
  - Dysphagia [Unknown]
  - Lung neoplasm malignant [Unknown]
  - Arthropathy [Unknown]
  - Stress [Unknown]
  - Blood glucose increased [Recovered/Resolved]
  - Drug ineffective [Unknown]
